FAERS Safety Report 12761776 (Version 1)
Quarter: 2016Q3

REPORT INFORMATION
  Report Type: Spontaneous
  Country: US (occurrence: US)
  Receive Date: 20160920
  Receipt Date: 20160920
  Transmission Date: 20161109
  Serious: No
  Sender: FDA-Public Use
  Company Number: US-PFIZER INC-2016433896

PATIENT
  Age: 34 Year
  Sex: Female

DRUGS (6)
  1. TOPAMAX [Suspect]
     Active Substance: TOPIRAMATE
     Dosage: 50 MG, 2X/DAY (2 TIMES PER DAY FOR 30 DAYS)
     Route: 048
     Dates: start: 20160714
  2. LYRICA [Suspect]
     Active Substance: PREGABALIN
     Indication: FIBROMYALGIA
     Dosage: 150 MG, 2X/DAY (2 TIMES A DAY FOR 90 DAYS)
     Route: 048
     Dates: start: 20160714
  3. TRAMADOL. [Suspect]
     Active Substance: TRAMADOL
     Indication: PAIN
     Dosage: UNK, 3X/DAY (50 MG; TAKE 1-2 TABLET BY ORAL 3 TIMES A DAY AS NEEDED FOR 30 DAYS PAIN.)
     Route: 048
     Dates: start: 20160714
  4. LYRICA [Suspect]
     Active Substance: PREGABALIN
     Indication: ENTHESOPATHY
  5. METHOCARBAMOL. [Suspect]
     Active Substance: METHOCARBAMOL
     Indication: MUSCLE SPASMS
     Dosage: 500 MG, AS NEEDED (BID PRN)
     Route: 048
     Dates: start: 20160714
  6. TIZANIDINE. [Suspect]
     Active Substance: TIZANIDINE
     Dosage: 4 MG, AS NEEDED (HS PRN)
     Route: 048
     Dates: start: 20160714

REACTIONS (1)
  - Drug effect incomplete [Unknown]
